FAERS Safety Report 14277446 (Version 3)
Quarter: 2018Q1

REPORT INFORMATION
  Report Type: Report from Study
  Country: NL (occurrence: NL)
  Receive Date: 20171212
  Receipt Date: 20180123
  Transmission Date: 20180508
  Serious: No
  Sender: FDA-Public Use
  Company Number: US-ASTRAZENECA-2017SF26272

PATIENT
  Age: 8 Month
  Sex: Female
  Weight: 8 kg

DRUGS (4)
  1. SYNAGIS [Suspect]
     Active Substance: PALIVIZUMAB
     Indication: ANTIVIRAL PROPHYLAXIS
     Route: 030
  2. SYNAGIS [Suspect]
     Active Substance: PALIVIZUMAB
     Indication: ANTIVIRAL PROPHYLAXIS
     Dosage: 107 MG MONTHLY ON 11-SEP-2017, 112 MG MONTHLY ON 10-OCT-2017,
     Route: 030
     Dates: start: 20170911, end: 20171010
  3. SYNAGIS [Suspect]
     Active Substance: PALIVIZUMAB
     Indication: ANTIVIRAL PROPHYLAXIS
     Dosage: 113 MG MONTHLY ON 06-NOV-2017, 120 MG MONTHLY ON 04-DEC-2017,
     Route: 030
     Dates: start: 20171106, end: 20171204
  4. ASCAL (ACETYLSALICYLATE CALCIUM) [Concomitant]
     Active Substance: ASPIRIN CALCIUM
     Indication: PRODUCT USED FOR UNKNOWN INDICATION
     Route: 065

REACTIONS (2)
  - Oxygen saturation decreased [Unknown]
  - Cyanosis [Recovered/Resolved]

NARRATIVE: CASE EVENT DATE: 201711
